FAERS Safety Report 5469990-2 (Version None)
Quarter: 2007Q3

REPORT INFORMATION
  Report Type: 
  Country: None (occurrence: None)
  Receive Date: 20070927
  Receipt Date: 20070917
  Transmission Date: 20080115
  Serious: Yes (Other)
  Sender: FDA-Public Use
  Company Number: US-PFIZER INC-2007078214

PATIENT
  Sex: Female
  Weight: 64.545 kg

DRUGS (10)
  1. CHANTIX [Suspect]
     Indication: EX-SMOKER
     Dates: start: 20070904, end: 20070916
  2. CORTISONE ACETATE TAB [Suspect]
  3. AVAPRO [Concomitant]
  4. SIMVASTATIN [Concomitant]
  5. IMIPRAMINE [Concomitant]
  6. PROPRANOLOL [Concomitant]
  7. DIAZEPAM [Concomitant]
  8. CALTRATE [Concomitant]
  9. VITAMIN D [Concomitant]
  10. BIOTIN [Concomitant]

REACTIONS (5)
  - HIP DEFORMITY [None]
  - LIP SWELLING [None]
  - MALAISE [None]
  - NAUSEA [None]
  - PAIN [None]
